FAERS Safety Report 12071386 (Version 1)
Quarter: 2016Q1

REPORT INFORMATION
  Report Type: Spontaneous
  Country: US (occurrence: US)
  Receive Date: 20160211
  Receipt Date: 20160211
  Transmission Date: 20160526
  Serious: Yes (Congenital Anomaly, Other)
  Sender: FDA-Public Use
  Company Number: US-TEVA-634425USA

PATIENT
  Sex: Male

DRUGS (2)
  1. ARIPIPRAZOLE. [Suspect]
     Active Substance: ARIPIPRAZOLE
     Indication: BIPOLAR DISORDER
     Dosage: TITRATED UPTO 25MG DAILY
     Route: 064
  2. LITHIUM. [Suspect]
     Active Substance: LITHIUM
     Indication: BIPOLAR DISORDER
     Dosage: INITIAL DOSE NOT STATED
     Route: 064

REACTIONS (3)
  - Microcephaly [Unknown]
  - Foetal exposure during pregnancy [Unknown]
  - Hypospadias [Unknown]
